FAERS Safety Report 5630570-7 (Version None)
Quarter: 2008Q1

REPORT INFORMATION
  Report Type: 
  Country: None (occurrence: None)
  Receive Date: 20080219
  Receipt Date: 20080214
  Transmission Date: 20080703
  Serious: Yes (Other)
  Sender: FDA-Public Use
  Company Number: A0709663A

PATIENT
  Age: 49 Year
  Sex: Female

DRUGS (4)
  1. LAMICTAL [Suspect]
     Indication: BIPOLAR DISORDER
     Dosage: 100MG AT NIGHT
     Route: 048
     Dates: start: 20080101
  2. EFFEXOR XR [Concomitant]
  3. XANAX [Concomitant]
  4. ENALAPRIL MALEATE AND HYDROCHLOROTHIAZIDE [Concomitant]

REACTIONS (10)
  - ANXIETY [None]
  - BLINDNESS [None]
  - CONFUSIONAL STATE [None]
  - DISTURBANCE IN ATTENTION [None]
  - FATIGUE [None]
  - INSOMNIA [None]
  - NAUSEA [None]
  - NERVOUSNESS [None]
  - POOR QUALITY SLEEP [None]
  - VISION BLURRED [None]
